FAERS Safety Report 10543163 (Version 1)
Quarter: 2014Q4

REPORT INFORMATION
  Report Type: Spontaneous
  Country: US (occurrence: None)
  Receive Date: 20141024
  Receipt Date: 20141024
  Transmission Date: 20150529
  Serious: No
  Sender: FDA-Public Use
  Company Number: None

PATIENT
  Age: 15 Year
  Sex: Female
  Weight: 56.7 kg

DRUGS (1)
  1. STRATTERA [Suspect]
     Active Substance: ATOMOXETINE HYDROCHLORIDE
     Indication: ATTENTION DEFICIT/HYPERACTIVITY DISORDER
     Dosage: 1 PILL
     Route: 048
     Dates: start: 20141001, end: 20141023

REACTIONS (6)
  - Pain [None]
  - Depression [None]
  - Urine flow decreased [None]
  - Influenza like illness [None]
  - Urinary retention [None]
  - Abdominal distension [None]

NARRATIVE: CASE EVENT DATE: 20141022
